FAERS Safety Report 13197736 (Version 2)
Quarter: 2017Q2

REPORT INFORMATION
  Report Type: Spontaneous
  Country: MX (occurrence: MX)
  Receive Date: 20170208
  Receipt Date: 20170524
  Transmission Date: 20170830
  Serious: Yes (Other)
  Sender: FDA-Public Use
  Company Number: MX-REGENERON PHARMACEUTICALS, INC.-2017-11571

PATIENT

DRUGS (3)
  1. EYLEA [Suspect]
     Active Substance: AFLIBERCEPT
     Dosage: 1 DF, Q2MON
     Dates: start: 20160920
  2. EYLEA [Suspect]
     Active Substance: AFLIBERCEPT
     Dosage: LAST APPLICATION
     Dates: start: 20161115, end: 20161115
  3. EYLEA [Suspect]
     Active Substance: AFLIBERCEPT
     Indication: NEOVASCULAR AGE-RELATED MACULAR DEGENERATION
     Dosage: THREE MONTHLY CHARGE DOSES
     Dates: start: 20160518

REACTIONS (5)
  - Cataract [Unknown]
  - Hypertensive crisis [Unknown]
  - Injection site haemorrhage [Unknown]
  - Injection site discomfort [Unknown]
  - Injection site pain [Unknown]
